FAERS Safety Report 15679694 (Version 4)
Quarter: 2020Q1

REPORT INFORMATION
  Report Type: Spontaneous
  Country: US (occurrence: US)
  Receive Date: 20181203
  Receipt Date: 20200127
  Transmission Date: 20200409
  Serious: Yes (Disabling, Other)
  Sender: FDA-Public Use
  Company Number: US-PFIZER INC-2018489951

PATIENT
  Age: 74 Year
  Sex: Female
  Weight: 48.99 kg

DRUGS (3)
  1. IBRANCE [Suspect]
     Active Substance: PALBOCICLIB
     Indication: BREAST CANCER
     Dosage: 75 MG, CYCLIC (ONCE DAILY, IN THE EVENING WITH FOOD, ON FOR 21 DAYS, THEN OFF FOR 7)
     Route: 048
     Dates: start: 20181023
  2. LETROZOLE. [Suspect]
     Active Substance: LETROZOLE
     Indication: BREAST CANCER
     Dosage: 2.5 MG, 1X/DAY (IN THE EVENING WITH FOOD)
     Route: 048
     Dates: start: 20181023
  3. IBRANCE [Suspect]
     Active Substance: PALBOCICLIB
     Dosage: 75 MG, CYCLIC (D1-21 Q 28)
     Route: 048
     Dates: start: 201811

REACTIONS (17)
  - C-reactive protein increased [Unknown]
  - Anxiety [Unknown]
  - White blood cell count abnormal [Unknown]
  - Mood swings [Unknown]
  - Arthralgia [Recovered/Resolved]
  - Headache [Unknown]
  - Red blood cell count abnormal [Unknown]
  - Neoplasm progression [Unknown]
  - Insomnia [Recovered/Resolved]
  - Somnolence [Unknown]
  - Affect lability [Unknown]
  - Constipation [Unknown]
  - Emotional disorder [Unknown]
  - Female reproductive tract disorder [Unknown]
  - Mental disorder [Unknown]
  - Paranoia [Unknown]
  - Vision blurred [Unknown]

NARRATIVE: CASE EVENT DATE: 201811
